FAERS Safety Report 16816341 (Version 1)
Quarter: 2019Q3

REPORT INFORMATION
  Report Type: Spontaneous
  Country: CA (occurrence: CA)
  Receive Date: 20190917
  Receipt Date: 20190917
  Transmission Date: 20191005
  Serious: No
  Sender: FDA-Public Use
  Company Number: CA-RECKITT BENCKISER HEALTHCARE INT LIMITED-RB-91520-2018

PATIENT
  Sex: Female

DRUGS (1)
  1. MUCINEX [Suspect]
     Active Substance: GUAIFENESIN
     Indication: NASOPHARYNGITIS
     Dosage: UNK
     Route: 065

REACTIONS (2)
  - Feeling jittery [Unknown]
  - Adverse reaction [Unknown]
